FAERS Safety Report 17930669 (Version 1)
Quarter: 2020Q2

REPORT INFORMATION
  Report Type: Spontaneous
  Country: US (occurrence: US)
  Receive Date: 20200623
  Receipt Date: 20200623
  Transmission Date: 20200714
  Serious: No
  Sender: FDA-Public Use
  Company Number: US-BAYER-2020-125005

PATIENT
  Age: 91 Year
  Sex: Female

DRUGS (3)
  1. MIRALAX [Suspect]
     Active Substance: POLYETHYLENE GLYCOL 3350
     Indication: GASTROINTESTINAL DISORDER
     Dosage: 1/2 TEASPOON AND 1 TEASPOON
     Route: 048
     Dates: start: 20200617
  2. MIRALAX [Suspect]
     Active Substance: POLYETHYLENE GLYCOL 3350
     Indication: GASTROINTESTINAL DISORDER
     Dosage: 1/4 TEASPOON
     Route: 048
     Dates: start: 20200615
  3. MIRALAX [Suspect]
     Active Substance: POLYETHYLENE GLYCOL 3350
     Indication: GASTROINTESTINAL DISORDER
     Dosage: 2 TEASPOON
     Route: 048
     Dates: start: 20200618

REACTIONS (4)
  - Incorrect dose administered [Unknown]
  - Faeces hard [Unknown]
  - Drug ineffective [Unknown]
  - Gastrointestinal motility disorder [None]
